FAERS Safety Report 12328961 (Version 1)
Quarter: 2016Q2

REPORT INFORMATION
  Report Type: Spontaneous
  Country: US (occurrence: US)
  Receive Date: 20160503
  Receipt Date: 20160503
  Transmission Date: 20160815
  Serious: Yes (Other)
  Sender: FDA-Public Use
  Company Number: US-AKORN PHARMACEUTICALS-2016AKN00198

PATIENT
  Sex: Female

DRUGS (7)
  1. ONDANSETRON ODT [Concomitant]
     Active Substance: ONDANSETRON
  2. MYORISAN [Suspect]
     Active Substance: ISOTRETINOIN
     Indication: ACNE
     Dosage: 40 MG, 1X/DAY
     Route: 048
     Dates: start: 20151201, end: 20160103
  3. LEXAPRO [Concomitant]
     Active Substance: ESCITALOPRAM OXALATE
  4. FAMOTIDINE. [Concomitant]
     Active Substance: FAMOTIDINE
  5. MYORISAN [Suspect]
     Active Substance: ISOTRETINOIN
     Dosage: 60 MG, 1X/DAY
     Route: 048
     Dates: start: 20160104, end: 20160202
  6. XANAX [Concomitant]
     Active Substance: ALPRAZOLAM
  7. ZENATANE [Suspect]
     Active Substance: ISOTRETINOIN
     Indication: ACNE
     Dosage: 60 MG, 1X/DAY
     Dates: start: 20160202, end: 2016

REACTIONS (2)
  - Anxiety [Recovered/Resolved]
  - Alopecia [Recovered/Resolved]
